FAERS Safety Report 7812862-6 (Version None)
Quarter: 2011Q4

REPORT INFORMATION
  Report Type: 
  Country: None (occurrence: None)
  Receive Date: 20111011
  Receipt Date: 20111005
  Transmission Date: 20120403
  Serious: Yes (Hospitalization)
  Sender: FDA-Public Use
  Company Number: 2011SP016102

PATIENT
  Age: 66 Year
  Sex: Female
  Weight: 76.7 kg

DRUGS (3)
  1. THIOPENTAL SODIUM [Suspect]
     Indication: INDUCTION OF ANAESTHESIA
     Dosage: 250 MG; IV
     Route: 042
     Dates: start: 20110406, end: 20110406
  2. ROCURONIUM BROMIDE [Suspect]
     Indication: NEUROMUSCULAR BLOCKING THERAPY
     Dosage: 40 MG; IV
     Route: 042
     Dates: start: 20110406, end: 20110406
  3. FENTANYL [Concomitant]

REACTIONS (2)
  - WHEEZING [None]
  - INCREASED BRONCHIAL SECRETION [None]
